FAERS Safety Report 17966307 (Version 8)
Quarter: 2020Q4

REPORT INFORMATION
  Report Type: Report from Study
  Country: US (occurrence: US)
  Receive Date: 20200630
  Receipt Date: 20201118
  Transmission Date: 20210113
  Serious: No
  Sender: FDA-Public Use
  Company Number: NVSC2020US183720

PATIENT
  Sex: Male

DRUGS (1)
  1. ENTRESTO [Suspect]
     Active Substance: SACUBITRIL\VALSARTAN
     Indication: CARDIAC FAILURE CHRONIC
     Dosage: UNK UNK, BID
     Route: 065
     Dates: start: 20200626

REACTIONS (5)
  - Memory impairment [Unknown]
  - Polydipsia [Unknown]
  - Decreased activity [Unknown]
  - Hypoacusis [Unknown]
  - Weight decreased [Unknown]
